FAERS Safety Report 5652539-9 (Version None)
Quarter: 2008Q1

REPORT INFORMATION
  Report Type: 
  Country: None (occurrence: None)
  Receive Date: 20080131
  Receipt Date: 20071107
  Transmission Date: 20080703
  Serious: No
  Sender: FDA-Public Use
  Company Number: US200711002011

PATIENT
  Age: 66 Year
  Sex: Male

DRUGS (5)
  1. BYETTA [Suspect]
     Indication: TYPE 2 DIABETES MELLITUS
     Dosage: 5 UG, 2/D, SUBCUTANEOUS;10 UG, 2/D, SUBCUTANEOUS;10 UG, 2/D, SUBCUTANEOUS;5 UG, OTHER, SUBCUTANEOUS
     Route: 058
     Dates: start: 20070501, end: 20071001
  2. BYETTA [Suspect]
     Indication: TYPE 2 DIABETES MELLITUS
     Dosage: 5 UG, 2/D, SUBCUTANEOUS;10 UG, 2/D, SUBCUTANEOUS;10 UG, 2/D, SUBCUTANEOUS;5 UG, OTHER, SUBCUTANEOUS
     Route: 058
     Dates: start: 20071001, end: 20071101
  3. BYETTA [Suspect]
     Indication: TYPE 2 DIABETES MELLITUS
     Dosage: 5 UG, 2/D, SUBCUTANEOUS;10 UG, 2/D, SUBCUTANEOUS;10 UG, 2/D, SUBCUTANEOUS;5 UG, OTHER, SUBCUTANEOUS
     Route: 058
     Dates: start: 20071101, end: 20071101
  4. BYETTA [Suspect]
     Indication: TYPE 2 DIABETES MELLITUS
     Dosage: 5 UG, 2/D, SUBCUTANEOUS;10 UG, 2/D, SUBCUTANEOUS;10 UG, 2/D, SUBCUTANEOUS;5 UG, OTHER, SUBCUTANEOUS
     Route: 058
     Dates: start: 20071102
  5. AMARYL [Concomitant]

REACTIONS (1)
  - BLOOD GLUCOSE INCREASED [None]
